FAERS Safety Report 8108850-5 (Version None)
Quarter: 2012Q1

REPORT INFORMATION
  Report Type: 
  Country: None (occurrence: None)
  Receive Date: 20120202
  Receipt Date: 20120201
  Transmission Date: 20120608
  Serious: Yes (Other)
  Sender: FDA-Public Use
  Company Number: US-PFIZER INC-2012027997

PATIENT
  Sex: Female
  Weight: 121 kg

DRUGS (12)
  1. TRAZODONE [Concomitant]
     Indication: DEPRESSION
     Dosage: UNK
  2. LAMOTRIGINE [Concomitant]
     Indication: DEPRESSION
     Dosage: UNK
  3. LAMOTRIGINE [Concomitant]
     Indication: ANXIETY
  4. CYMBALTA [Concomitant]
     Indication: DEPRESSION
     Dosage: UNK
  5. LYRICA [Suspect]
     Indication: FIBROMYALGIA
     Dosage: UNK
     Dates: start: 20060101
  6. KLONOPIN [Concomitant]
     Indication: DEPRESSION
     Dosage: UNK
  7. CYMBALTA [Concomitant]
     Indication: FIBROMYALGIA
  8. TRAZODONE [Concomitant]
     Indication: ANXIETY
  9. ULTRAM [Concomitant]
     Dosage: UNK
  10. OSTEO BI-FLEX [Concomitant]
     Indication: LIMB DISCOMFORT
     Dosage: UNK
  11. KLONOPIN [Concomitant]
     Indication: ANXIETY
  12. NAPROXEN (ALEVE) [Concomitant]
     Indication: PAIN
     Dosage: UNK

REACTIONS (1)
  - FIBROMYALGIA [None]
